FAERS Safety Report 6532361-1 (Version None)
Quarter: 2010Q1

REPORT INFORMATION
  Report Type: 
  Country: None (occurrence: None)
  Receive Date: 20100108
  Receipt Date: 20100104
  Transmission Date: 20100710
  Serious: Yes (Death)
  Sender: FDA-Public Use
  Company Number: US-PFIZER INC-2010001044

PATIENT
  Age: 49 Year
  Sex: Female

DRUGS (5)
  1. HYDROXYZINE PAMOATE [Suspect]
     Route: 048
  2. VENLAFAXINE HCL [Suspect]
     Route: 048
  3. TRAMADOL HCL [Suspect]
     Route: 048
  4. CYCLOBENZAPRINE [Suspect]
     Route: 048
  5. LAMOTRIGINE [Suspect]
     Route: 048

REACTIONS (1)
  - COMPLETED SUICIDE [None]
